FAERS Safety Report 4528857-4 (Version None)
Quarter: 2004Q4

REPORT INFORMATION
  Report Type: 
  Country: None (occurrence: None)
  Receive Date: 20041214
  Receipt Date: 20041129
  Transmission Date: 20050328
  Serious: Yes (Other)
  Sender: FDA-Public Use
  Company Number: 2004-DE-06007GD

PATIENT
  Age: 2 Month
  Sex: Female

DRUGS (5)
  1. NEVIRAPINE (NEVIRAPINE) (NEVIRAPINE) [Suspect]
     Route: 015
  2. ZIDOVUDINE [Suspect]
     Dosage: SEE IMAGE
     Route: 015
  3. ZIDOVUDINE [Suspect]
     Dosage: SEE IMAGE
     Route: 015
  4. LAMIVUDINE (LAMIVUDINE) [Suspect]
     Route: 015
  5. BENZODIAZEPINES (BENZODIAZEPINES DERIVATIVES) [Suspect]
     Route: 015

REACTIONS (7)
  - DRUG EXPOSURE DURING PREGNANCY [None]
  - DRUG TOXICITY [None]
  - HYPERLACTACIDAEMIA [None]
  - HYPOTONIA [None]
  - MITOCHONDRIAL CYTOPATHY [None]
  - MUSCLE SPASTICITY [None]
  - REFLEXES ABNORMAL [None]
